FAERS Safety Report 11966186 (Version 5)
Quarter: 2016Q1

REPORT INFORMATION
  Report Type: Spontaneous
  Country: JP (occurrence: JP)
  Receive Date: 20160127
  Receipt Date: 20160316
  Transmission Date: 20160526
  Serious: Yes (Death, Life-Threatening)
  Sender: FDA-Public Use
  Company Number: JP-PFIZER INC-2016045097

PATIENT
  Age: 77 Year
  Sex: Female

DRUGS (12)
  1. CARDENALIN [Concomitant]
     Active Substance: DOXAZOSIN MESYLATE
     Dosage: 1 MG
  2. LANSOPRAZOLE. [Concomitant]
     Active Substance: LANSOPRAZOLE
     Dosage: 15 MG
  3. CELECOX [Suspect]
     Active Substance: CELECOXIB
     Indication: FRACTURE PAIN
     Dosage: 100 MG, 2X/DAY
     Route: 048
     Dates: start: 20160112, end: 20160122
  4. NIFEDIPINE. [Concomitant]
     Active Substance: NIFEDIPINE
     Dosage: 20 MG
  5. EVISTA [Concomitant]
     Active Substance: RALOXIFENE HYDROCHLORIDE
     Dosage: 60 MG
  6. MEDICON /00048102/ [Concomitant]
     Active Substance: DEXTROMETHORPHAN HYDROBROMIDE
     Dosage: POWDER (EXCEPT DUSTING POWDER), 10%
  7. RHYTHMY [Concomitant]
     Active Substance: RILMAZAFONE HYDROCHLORIDE
     Dosage: 1 MG
  8. MICARDIS [Concomitant]
     Active Substance: TELMISARTAN
     Dosage: 40 MG
  9. RACOL [Concomitant]
     Active Substance: AMINO ACIDS\DEXTROSE\ELECTROLYTES NOS
     Dosage: UNK
  10. CALONAL [Concomitant]
     Active Substance: ACETAMINOPHEN
     Dosage: 200 MG
     Route: 048
  11. MIKELAN [Concomitant]
     Dosage: 5 MG
  12. BIOFERMIN R [Concomitant]
     Active Substance: BACILLUS SUBTILIS\LACTOBACILLUS ACIDOPHILUS\STREPTOCOCCUS FAECAIS
     Dosage: UNK
     Route: 048

REACTIONS (2)
  - Intentional underdose [Unknown]
  - Interstitial lung disease [Fatal]

NARRATIVE: CASE EVENT DATE: 20160112
